FAERS Safety Report 9258248 (Version 1)
Quarter: 2013Q1

REPORT INFORMATION
  Report Type: Spontaneous
  Country: US (occurrence: None)
  Receive Date: 20121212
  Receipt Date: 20121212
  Transmission Date: 20140127
  Serious: No
  Sender: FDA-Public Use
  Company Number: 1210USA001986

PATIENT
  Age: 60 Year
  Sex: Female
  Weight: 73.5 kg

DRUGS (3)
  1. VICTRELIS [Suspect]
     Indication: HEPATITIS C
     Dates: start: 20120608
  2. RIBASPHERE [Suspect]
  3. PEGASYS [Suspect]

REACTIONS (2)
  - Influenza like illness [None]
  - Fatigue [None]
